FAERS Safety Report 4591097-7 (Version None)
Quarter: 2005Q1

REPORT INFORMATION
  Report Type: 
  Country: None (occurrence: None)
  Receive Date: 20050218
  Receipt Date: 20050202
  Transmission Date: 20050727
  Serious: Yes (Hospitalization, Disabling, Other)
  Sender: FDA-Public Use
  Company Number: DSA_25511_2004

PATIENT
  Age: 83 Year
  Sex: Female

DRUGS (5)
  1. RENIVACE [Suspect]
     Indication: HYPERTENSION
     Dosage: 5 MG QD PO
     Route: 048
     Dates: start: 19880705, end: 20041209
  2. ADALAT [Concomitant]
  3. MUCOSTA [Concomitant]
  4. ZANTAC [Concomitant]
  5. GANATON [Concomitant]

REACTIONS (7)
  - AORTIC VALVE DISEASE MIXED [None]
  - APLASTIC ANAEMIA [None]
  - CATARACT [None]
  - CEREBRAL INFARCTION [None]
  - DYSPLASIA [None]
  - PANCYTOPENIA [None]
  - PNEUMONIA [None]
